FAERS Safety Report 7862222-7 (Version None)
Quarter: 2011Q4

REPORT INFORMATION
  Report Type: 
  Country: None (occurrence: None)
  Receive Date: 20111027
  Receipt Date: 20101102
  Transmission Date: 20120403
  Serious: No
  Sender: FDA-Public Use
  Company Number: US-AMGEN-USASP2010003584

PATIENT
  Age: 49 Year
  Sex: Female

DRUGS (6)
  1. FOLIC ACID [Concomitant]
     Dosage: 1 MG, UNK
  2. IRON [Concomitant]
     Dosage: 325 MG, UNK
  3. METHOTREXATE [Concomitant]
     Dosage: 2.5 MG, UNK
  4. ENBREL [Suspect]
     Indication: PRODUCT USED FOR UNKNOWN INDICATION
     Dosage: 50 MG, QWK
  5. VITAMIN C                          /00008001/ [Concomitant]
     Dosage: 250 MG, UNK
  6. VITAMIN B12                        /00056201/ [Concomitant]
     Dosage: 500 UNK, UNK

REACTIONS (2)
  - PAIN IN EXTREMITY [None]
  - MUSCULOSKELETAL STIFFNESS [None]
